FAERS Safety Report 4606843-3 (Version None)
Quarter: 2005Q1

REPORT INFORMATION
  Report Type: 
  Country: None (occurrence: None)
  Receive Date: 20050310
  Receipt Date: 20050225
  Transmission Date: 20050727
  Serious: Yes (Disabling)
  Sender: FDA-Public Use
  Company Number: 2005038504

PATIENT
  Sex: Female
  Weight: 63.5036 kg

DRUGS (9)
  1. NORVASC [Suspect]
     Indication: HYPERTENSION
     Dosage: 5 MG (5 MG, 1 IN 1 D), ORAL
     Route: 048
  2. FUROSEMIDE [Concomitant]
  3. EZETIMIBE (EZETIMIBE) [Concomitant]
  4. VENLAFAXINE HCL [Concomitant]
  5. MECLOZINE HYDROCHLORIDE (MECLOZINE HYDROCHLORIDE) [Concomitant]
  6. FOLIC ACID [Concomitant]
  7. MULTI-VITAMINS  VITAFIT (CALCIUM PANTOTHENATE, FOLIC ACID, VITAMINS NO [Concomitant]
  8. GLUCOSAMINE (GLUCOSAMINE) [Concomitant]
  9. ESOMEPRAZOLE (ESOMEPRAZOLE) [Concomitant]

REACTIONS (6)
  - ARTHRITIS [None]
  - BONE DISORDER [None]
  - DIFFICULTY IN WALKING [None]
  - FIBROMYALGIA [None]
  - LOWER LIMB FRACTURE [None]
  - TIBIA FRACTURE [None]
